FAERS Safety Report 20416836 (Version 1)
Quarter: 2022Q1

REPORT INFORMATION
  Report Type: Spontaneous
  Country: JP (occurrence: JP)
  Receive Date: 20220202
  Receipt Date: 20220202
  Transmission Date: 20220424
  Serious: Yes (Other)
  Sender: FDA-Public Use
  Company Number: JP-PFIZER INC-202200132944

PATIENT
  Sex: Male

DRUGS (1)
  1. METHOTREXATE SODIUM [Suspect]
     Active Substance: METHOTREXATE SODIUM
     Indication: Rheumatoid arthritis
     Dosage: UNK
     Dates: start: 2019, end: 202003

REACTIONS (4)
  - Lymphoproliferative disorder [Unknown]
  - Osteonecrosis of jaw [Unknown]
  - Mucosal ulceration [Unknown]
  - Dental restoration failure [Unknown]
